FAERS Safety Report 24200633 (Version 1)
Quarter: 2024Q3

REPORT INFORMATION
  Report Type: Spontaneous
  Country: US (occurrence: US)
  Receive Date: 20240812
  Receipt Date: 20240812
  Transmission Date: 20241017
  Serious: No
  Sender: ANI
  Company Number: US-ANIPHARMA-2024-US-038417

PATIENT
  Sex: Male

DRUGS (1)
  1. CORTICOTROPIN [Suspect]
     Active Substance: CORTICOTROPIN
     Indication: Nephrotic syndrome
     Dosage: 1 ML TWICE PER WEEK UNDER THE SKIN
     Route: 058
     Dates: start: 202405

REACTIONS (2)
  - Nasopharyngitis [Unknown]
  - Cystitis [Unknown]
